FAERS Safety Report 4616556-X (Version None)
Quarter: 2005Q1

REPORT INFORMATION
  Report Type: 
  Country: None (occurrence: None)
  Receive Date: 20050318
  Receipt Date: 20050302
  Transmission Date: 20050727
  Serious: Yes (Death)
  Sender: FDA-Public Use
  Company Number: L04-USA-07403-18

PATIENT
  Age: 40 Year
  Sex: Female

DRUGS (6)
  1. CARBAMAZEPINE [Suspect]
  2. CLONAZEPAM [Suspect]
  3. ACETAMINOPHEN AND HYDROCODONE BITARTRATE [Suspect]
  4. CHLORDIAZEPOXIDE [Suspect]
  5. LITHIUM [Suspect]
  6. QUETIAPINE FUMARATE [Suspect]

REACTIONS (6)
  - BLOOD PRESSURE ABNORMAL [None]
  - COMPLETED SUICIDE [None]
  - INTENTIONAL MISUSE [None]
  - MYDRIASIS [None]
  - PNEUMONIA [None]
  - PUPIL FIXED [None]
